FAERS Safety Report 17886067 (Version 2)
Quarter: 2020Q4

REPORT INFORMATION
  Report Type: Spontaneous
  Country: US (occurrence: US)
  Receive Date: 20200611
  Receipt Date: 20201008
  Transmission Date: 20210113
  Serious: No
  Sender: FDA-Public Use
  Company Number: US-AMGEN INC.-USASP2020091440

PATIENT
  Age: 66 Year
  Sex: Female

DRUGS (3)
  1. AIMOVIG [Suspect]
     Active Substance: ERENUMAB-AOOE
     Indication: MIGRAINE
     Dosage: 70 MILLIGRAM
     Route: 065
     Dates: start: 201904
  2. OXYCODONE [Concomitant]
     Active Substance: OXYCODONE
  3. AIMOVIG [Suspect]
     Active Substance: ERENUMAB-AOOE
     Dosage: 140 MILLIGRAM
     Route: 065
     Dates: start: 2020

REACTIONS (10)
  - Migraine [Not Recovered/Not Resolved]
  - Occupational exposure to product [Unknown]
  - Injection site pain [Not Recovered/Not Resolved]
  - Oesophagitis [Unknown]
  - Occipital neuralgia [Unknown]
  - Constipation [Not Recovered/Not Resolved]
  - Accidental exposure to product [Unknown]
  - Product storage error [Unknown]
  - Therapeutic product effect decreased [Unknown]
  - Device leakage [Unknown]

NARRATIVE: CASE EVENT DATE: 201904
